FAERS Safety Report 22221749 (Version 1)
Quarter: 2023Q2

REPORT INFORMATION
  Report Type: Report from Study
  Country: CO (occurrence: CO)
  Receive Date: 20230418
  Receipt Date: 20230418
  Transmission Date: 20230721
  Serious: Yes (Hospitalization, Other)
  Sender: FDA-Public Use
  Company Number: CO-BAYER-2023A024835

PATIENT
  Age: 73 Year
  Sex: Male

DRUGS (5)
  1. RIVAROXABAN [Suspect]
     Active Substance: RIVAROXABAN
     Indication: Atrial fibrillation
     Dosage: 15 MG, QD
     Route: 048
     Dates: start: 20181001
  2. METOPROLOL [Concomitant]
     Active Substance: METOPROLOL
     Indication: Hypertension
     Dosage: 200 MG
  3. SPIRONOLACTONE [Concomitant]
     Active Substance: SPIRONOLACTONE
     Dosage: 25 MG
  4. SPIRONOLACTONE [Concomitant]
     Active Substance: SPIRONOLACTONE
     Dosage: 25 MG, UNK
  5. VALSARTAN [Concomitant]
     Active Substance: VALSARTAN
     Dosage: 50 MG

REACTIONS (5)
  - Cardiac arrest [Unknown]
  - Haemorrhage [Unknown]
  - Renal impairment [Unknown]
  - Mouth haemorrhage [Unknown]
  - Discomfort [Unknown]

NARRATIVE: CASE EVENT DATE: 20220828
